FAERS Safety Report 5245857-X (Version None)
Quarter: 2007Q1

REPORT INFORMATION
  Report Type: 
  Country: None (occurrence: None)
  Receive Date: 20070223
  Receipt Date: 20070214
  Transmission Date: 20070707
  Serious: Yes (Hospitalization)
  Sender: FDA-Public Use
  Company Number: FR-ABBOTT-07P-056-0359235-00

PATIENT
  Age: 4 Year
  Sex: Male

DRUGS (4)
  1. ZECLAR [Suspect]
     Indication: TONSILLITIS
     Route: 048
     Dates: start: 20070122, end: 20070123
  2. ZECLAR [Suspect]
     Indication: OTITIS MEDIA
  3. IBUPROFEN [Suspect]
     Indication: TONSILLITIS
     Route: 048
     Dates: start: 20070121, end: 20070123
  4. IBUPROFEN [Suspect]
     Indication: OTITIS MEDIA

REACTIONS (10)
  - CONDITION AGGRAVATED [None]
  - EAR PAIN [None]
  - HEADACHE [None]
  - INFECTION [None]
  - OEDEMA [None]
  - OTORRHOEA [None]
  - PYREXIA [None]
  - RETINAL DISORDER [None]
  - TYMPANIC MEMBRANE DISORDER [None]
  - TYMPANIC MEMBRANE HYPERAEMIA [None]
